FAERS Safety Report 4753108-5 (Version None)
Quarter: 2005Q3

REPORT INFORMATION
  Report Type: 
  Country: None (occurrence: None)
  Receive Date: 20050826
  Receipt Date: 20050311
  Transmission Date: 20060218
  Serious: Yes (Hospitalization, Disabling)
  Sender: FDA-Public Use
  Company Number: US-MERCK-0503USA02652

PATIENT
  Age: 53 Year
  Sex: Male
  Weight: 61 kg

DRUGS (8)
  1. VIOXX [Suspect]
     Indication: MYALGIA
     Route: 048
     Dates: start: 19990101, end: 20020220
  2. VIOXX [Suspect]
     Route: 048
     Dates: start: 19990101, end: 20020220
  3. VIOXX [Suspect]
     Indication: ARTHRALGIA
     Route: 048
     Dates: start: 19990101, end: 20020220
  4. VIOXX [Suspect]
     Route: 048
     Dates: start: 19990101, end: 20020220
  5. NEURONTIN [Concomitant]
     Route: 065
  6. TYLENOL [Concomitant]
     Indication: MYALGIA
     Route: 065
     Dates: start: 19900101, end: 19990101
  7. TYLENOL [Concomitant]
     Indication: ARTHRALGIA
     Route: 065
     Dates: start: 19900101, end: 19990101
  8. CYANOCOBALAMIN [Concomitant]
     Indication: VITAMIN SUPPLEMENTATION
     Route: 051

REACTIONS (6)
  - ANXIETY [None]
  - CEREBROVASCULAR ACCIDENT [None]
  - CONVULSION [None]
  - DEPRESSION [None]
  - HYPERTENSION [None]
  - STRESS [None]
